FAERS Safety Report 7083850-5 (Version None)
Quarter: 2010Q4

REPORT INFORMATION
  Report Type: 
  Country: None (occurrence: None)
  Receive Date: 20101104
  Receipt Date: 20101019
  Transmission Date: 20110411
  Serious: Yes (Hospitalization)
  Sender: FDA-Public Use
  Company Number: FR-AMGEN-FRASP2010000920

PATIENT

DRUGS (4)
  1. ENBREL [Suspect]
     Indication: RHEUMATOID ARTHRITIS
     Dosage: UNKNOWN
     Route: 058
     Dates: start: 20090101, end: 20101001
  2. CORTANCYL [Concomitant]
     Dosage: UNKNOWN
     Route: 048
  3. ARAVA [Concomitant]
     Indication: RHEUMATOID ARTHRITIS
     Dosage: UNKNOWN
     Route: 048
  4. GENTAMICIN [Suspect]
     Dosage: UNK
     Dates: start: 20101001

REACTIONS (6)
  - ARTHRITIS INFECTIVE [None]
  - CONDITION AGGRAVATED [None]
  - DISEASE PROGRESSION [None]
  - OSTEOMYELITIS [None]
  - POST PROCEDURAL INFECTION [None]
  - RHEUMATOID ARTHRITIS [None]
